FAERS Safety Report 20203825 (Version 1)
Quarter: 2021Q4

REPORT INFORMATION
  Report Type: Spontaneous
  Country: US (occurrence: US)
  Receive Date: 20211219
  Receipt Date: 20211219
  Transmission Date: 20220303
  Serious: No
  Sender: FDA-Public Use
  Company Number: US-AMGEN-USASP2021199072

PATIENT
  Sex: Male

DRUGS (2)
  1. PROLIA [Suspect]
     Active Substance: DENOSUMAB
     Indication: Product used for unknown indication
     Dosage: UNK
     Route: 030
  2. TUBERCULIN PURIFIED PROTEIN DERIVATIVE [Concomitant]
     Active Substance: TUBERCULIN PURIFIED PROTEIN DERIVATIVE
     Indication: Product used for unknown indication
     Dosage: 2 NANOGRAM
     Route: 065

REACTIONS (1)
  - Incorrect route of product administration [Unknown]
